FAERS Safety Report 16997100 (Version 1)
Quarter: 2019Q4

REPORT INFORMATION
  Report Type: Spontaneous
  Country: US (occurrence: US)
  Receive Date: 20190924
  Receipt Date: 20190924
  Transmission Date: 20200122
  Serious: No
  Sender: FDA-Public Use
  Company Number: None

PATIENT
  Age: 30 Year
  Sex: Male

DRUGS (1)
  1. REMICADE [Suspect]
     Active Substance: INFLIXIMAB
     Dosage: ?          OTHER FREQUENCY:UNKNOWN;OTHER ROUTE:UNKNOWN?
     Dates: start: 201903, end: 201908

REACTIONS (3)
  - Drug specific antibody [None]
  - Pneumonia [None]
  - Influenza [None]

NARRATIVE: CASE EVENT DATE: 20190716
